FAERS Safety Report 20040668 (Version 1)
Quarter: 2021Q4

REPORT INFORMATION
  Report Type: Spontaneous
  Country: US (occurrence: None)
  Receive Date: 20211105
  Receipt Date: 20211105
  Transmission Date: 20220303
  Serious: Yes (Hospitalization)
  Sender: FDA-Public Use
  Company Number: None

PATIENT
  Sex: Male

DRUGS (2)
  1. AMINOCAPROIC ACID [Suspect]
     Active Substance: AMINOCAPROIC ACID
     Indication: Iron deficiency anaemia
     Dosage: OTHER FREQUENCY : SEE B.6 (PAGE 2);?
     Route: 048
     Dates: start: 20190503
  2. AMINOCAPR AC TAB 500MG [Concomitant]

REACTIONS (1)
  - Gastrointestinal haemorrhage [None]
